FAERS Safety Report 20756159 (Version 1)
Quarter: 2022Q2

REPORT INFORMATION
  Report Type: Spontaneous
  Country: US (occurrence: None)
  Receive Date: 20220426
  Receipt Date: 20220426
  Transmission Date: 20220721
  Serious: Yes (Other)
  Sender: FDA-Public Use
  Company Number: None

PATIENT
  Age: 57 Year
  Sex: Male

DRUGS (5)
  1. STELARA [Suspect]
     Active Substance: USTEKINUMAB
     Indication: Crohn^s disease
     Route: 058
  2. FARXIGA [Concomitant]
     Active Substance: DAPAGLIFLOZIN PROPANEDIOL
  3. OZEMPIC [Concomitant]
     Active Substance: SEMAGLUTIDE
  4. PIOGLITAZONE [Concomitant]
     Active Substance: PIOGLITAZONE
  5. STELARA [Concomitant]
     Active Substance: USTEKINUMAB

REACTIONS (1)
  - Surgery [None]

NARRATIVE: CASE EVENT DATE: 20220307
